FAERS Safety Report 9338207 (Version 5)
Quarter: 2014Q3

REPORT INFORMATION
  Report Type: Spontaneous
  Country: CA (occurrence: CA)
  Receive Date: 20130610
  Receipt Date: 20140821
  Transmission Date: 20150326
  Serious: Yes (Other)
  Sender: FDA-Public Use
  Company Number: CA-ROCHE-1234606

PATIENT
  Sex: Female

DRUGS (7)
  1. MACROBID [Suspect]
     Active Substance: NITROFURANTOIN\NITROFURANTOIN MONOHYDRATE
     Indication: URINARY TRACT INFECTION
     Route: 065
  2. SINGULAIR [Concomitant]
     Active Substance: MONTELUKAST SODIUM
  3. ADVAIR HFA [Concomitant]
     Active Substance: FLUTICASONE PROPIONATE\SALMETEROL XINAFOATE
  4. XOLAIR [Suspect]
     Active Substance: OMALIZUMAB
     Indication: ASTHMA
     Route: 058
     Dates: start: 20120320
  5. PREDNISONE. [Concomitant]
     Active Substance: PREDNISONE
  6. ZENHALE [Concomitant]
     Active Substance: FORMOTEROL FUMARATE\MOMETASONE FUROATE
  7. VENTOLINE [Concomitant]
     Active Substance: ALBUTEROL

REACTIONS (8)
  - Abdominal pain lower [Unknown]
  - Pulmonary function test decreased [Unknown]
  - Fatigue [Unknown]
  - Pneumonia [Unknown]
  - Hepatitis viral [Unknown]
  - Contusion [Unknown]
  - Pain [Unknown]
  - Urinary tract infection [Unknown]
